FAERS Safety Report 7095808-0 (Version None)
Quarter: 2010Q4

REPORT INFORMATION
  Report Type: 
  Country: None (occurrence: None)
  Receive Date: 20101109
  Receipt Date: 20101109
  Transmission Date: 20110411
  Serious: Yes (Hospitalization)
  Sender: FDA-Public Use
  Company Number: None

PATIENT
  Sex: Female
  Weight: 52 kg

DRUGS (2)
  1. CISPLATIN [Suspect]
     Dosage: 118.4 MG
  2. ETOPOSIDE [Suspect]
     Dosage: 444 MG

REACTIONS (3)
  - DYSPHAGIA [None]
  - HYPOPHAGIA [None]
  - NEUTROPHIL COUNT DECREASED [None]
